FAERS Safety Report 7167661-8 (Version None)
Quarter: 2010Q4

REPORT INFORMATION
  Report Type: 
  Country: None (occurrence: None)
  Receive Date: 20101216
  Receipt Date: 20100708
  Transmission Date: 20110411
  Serious: No
  Sender: FDA-Public Use
  Company Number: A0869203A

PATIENT
  Age: 51 Year
  Sex: Male

DRUGS (1)
  1. NICOTINE POLACRILEX [Suspect]

REACTIONS (3)
  - LARYNX IRRITATION [None]
  - OROPHARYNGEAL DISCOMFORT [None]
  - OROPHARYNGEAL PAIN [None]
